FAERS Safety Report 4946464-6 (Version None)
Quarter: 2006Q1

REPORT INFORMATION
  Report Type: 
  Country: None (occurrence: None)
  Receive Date: 20060317
  Receipt Date: 20060310
  Transmission Date: 20060701
  Serious: Yes (Hospitalization)
  Sender: FDA-Public Use
  Company Number: DK-NOVOPROD-251519

PATIENT
  Age: 26 Year
  Sex: Female

DRUGS (2)
  1. LEVEMIR [Suspect]
     Indication: DIABETES MELLITUS
     Dates: start: 20050420, end: 20050622
  2. NOVORAPID [Concomitant]
     Indication: DIABETES MELLITUS
     Dosage: 10+10+10

REACTIONS (3)
  - INJECTION SITE ABSCESS [None]
  - INJECTION SITE REACTION [None]
  - SCAR [None]
